FAERS Safety Report 9873801 (Version 2)
Quarter: 2019Q1

REPORT INFORMATION
  Report Type: Other
  Country: US (occurrence: US)
  Receive Date: 20140206
  Receipt Date: 20190126
  Transmission Date: 20190418
  Serious: No
  Sender: FDA-Public Use
  Company Number: US-ACORDA-ACO_34610_2013

PATIENT
  Sex: Female

DRUGS (1)
  1. AMPYRA [Suspect]
     Active Substance: DALFAMPRIDINE
     Indication: PRODUCT USED FOR UNKNOWN INDICATION
     Dosage: 10 MG, BID
     Dates: start: 20121115

REACTIONS (3)
  - Drug ineffective [Unknown]
  - Peroneal nerve palsy [Not Recovered/Not Resolved]
  - Synovial cyst [Not Recovered/Not Resolved]
